APPROVED DRUG PRODUCT: ZONISAMIDE
Active Ingredient: ZONISAMIDE
Strength: 25MG
Dosage Form/Route: CAPSULE;ORAL
Application: A214492 | Product #001 | TE Code: AB
Applicant: UNICHEM LABORATORIES LTD
Approved: Jan 26, 2021 | RLD: No | RS: No | Type: RX